FAERS Safety Report 8784513 (Version 1)
Quarter: 2012Q4

REPORT INFORMATION
  Report Type: 
  Country: NL (occurrence: NL)
  Receive Date: 20120913
  Receipt Date: 20120913
  Transmission Date: 20130627
  Serious: Yes (Other)
  Sender: FDA-Public Use
  Company Number: NL-AMGEN-NLDSP2012012802

PATIENT
  Age: 56 Year
  Sex: Female

DRUGS (5)
  1. ENBREL [Suspect]
     Indication: RHEUMATOID ARTHRITIS
     Dosage: 50 mg, weekly
     Dates: start: 20080826
  2. ENBREL [Suspect]
     Dosage: 25 mg, weekly
  3. METHOTREXATE [Concomitant]
     Dosage: 7.5 mg, weekly
  4. CELEBREX [Concomitant]
     Dosage: 100 mg, as needed
  5. FOLIC ACID [Concomitant]
     Dosage: 5 mg, weekly

REACTIONS (1)
  - Amyotrophic lateral sclerosis [Not Recovered/Not Resolved]
